FAERS Safety Report 4432000-X (Version None)
Quarter: 2004Q3

REPORT INFORMATION
  Report Type: 
  Country: None (occurrence: None)
  Receive Date: 20040819
  Receipt Date: 20040805
  Transmission Date: 20050211
  Serious: Yes (Death, Other)
  Sender: FDA-Public Use
  Company Number: USA-2004-0012480

PATIENT
  Age: 44 Year
  Sex: Male
  Weight: 79.8 kg

DRUGS (3)
  1. OXYCONTIN [Suspect]
  2. ETHANOL (ETHANOL) [Suspect]
  3. HYDROCODONE (HYDROCODONE) [Suspect]

REACTIONS (11)
  - ACCIDENT [None]
  - ALCOHOL POISONING [None]
  - CONTUSION [None]
  - DRUG ABUSER [None]
  - DRUG SCREEN POSITIVE [None]
  - EXCORIATION [None]
  - HAEMORRHAGE [None]
  - INTENTIONAL MISUSE [None]
  - SELF-MEDICATION [None]
  - SKIN LESION [None]
  - THERAPEUTIC AGENT TOXICITY [None]
